FAERS Safety Report 9580199 (Version 1)
Quarter: 2013Q3

REPORT INFORMATION
  Report Type: Spontaneous
  Country: US (occurrence: None)
  Receive Date: 20130916
  Receipt Date: 20130916
  Transmission Date: 20140515
  Serious: Yes (Other)
  Sender: FDA-Public Use
  Company Number: JPI-P-032332

PATIENT
  Age: 47 Year
  Sex: Female

DRUGS (1)
  1. XYREM (500 MILLIGRAM/MILLILITERS, SOLUTION) (SODIUM OXYBATE) [Suspect]
     Indication: NARCOLEPSY
     Dosage: 4.5 GM (2.25 GM, 2 IN 1 D), ORAL
     Route: 048
     Dates: start: 20130128, end: 2013

REACTIONS (8)
  - Memory impairment [None]
  - Loss of consciousness [None]
  - Feeling abnormal [None]
  - Motor dysfunction [None]
  - Crying [None]
  - Local swelling [None]
  - Pain [None]
  - Faecal incontinence [None]
